FAERS Safety Report 5514470-9 (Version None)
Quarter: 2007Q4

REPORT INFORMATION
  Report Type: 
  Country: None (occurrence: None)
  Receive Date: 20071106
  Receipt Date: 20070621
  Transmission Date: 20080405
  Serious: Yes (Hospitalization)
  Sender: FDA-Public Use
  Company Number: US200706004941

PATIENT
  Age: 43 Year
  Sex: Female

DRUGS (7)
  1. PROZAC [Suspect]
     Indication: DEPRESSION
     Dosage: 60 MG, DAILY (1/D), ORAL ; 60 MG, DAILY (1/D), ORAL
     Route: 048
     Dates: start: 20061201, end: 20070301
  2. PROZAC [Suspect]
     Indication: DEPRESSION
     Dosage: 60 MG, DAILY (1/D), ORAL ; 60 MG, DAILY (1/D), ORAL
     Route: 048
     Dates: start: 20070101
  3. CAMPRAL [Concomitant]
  4. BUSPAR [Concomitant]
  5. PROTONIX [Concomitant]
  6. DOXEPIN HCL [Concomitant]
  7. RED BLOOD CELLS [Concomitant]

REACTIONS (3)
  - GASTROINTESTINAL HAEMORRHAGE [None]
  - HAEMORRHOIDS [None]
  - THROMBOCYTOPENIA [None]
